FAERS Safety Report 9028528 (Version 2)
Quarter: 2013Q1

REPORT INFORMATION
  Report Type: Report from Study
  Country: DE (occurrence: DE)
  Receive Date: 20130124
  Receipt Date: 20130125
  Transmission Date: 20140127
  Serious: Yes (Hospitalization)
  Sender: FDA-Public Use
  Company Number: DE-ROCHE-1177633

PATIENT
  Age: 46 Year
  Sex: Female
  Weight: 48 kg

DRUGS (4)
  1. BEVACIZUMAB [Suspect]
     Indication: BREAST CANCER
     Dosage: MOST RECENT DOSE PRIOR TO AE ON 10/DEC/2012
     Route: 065
     Dates: start: 20120611
  2. CAPECITABINE [Suspect]
     Indication: BREAST CANCER
     Dosage: MOST RECENT DOSE PRIOR TO AE ON 31/DEC/2012
     Route: 065
     Dates: start: 20120527
  3. IBUPROFEN [Concomitant]
     Route: 065
  4. CARBOPLATIN [Concomitant]
     Dosage: AS MONO AND RADIOTHERAPY
     Route: 065

REACTIONS (1)
  - Hypercalcaemia [Recovered/Resolved]
